FAERS Safety Report 9049677 (Version 2)
Quarter: 2013Q2

REPORT INFORMATION
  Report Type: Spontaneous
  Country: US (occurrence: US)
  Receive Date: 20130205
  Receipt Date: 20130514
  Transmission Date: 20140414
  Serious: No
  Sender: FDA-Public Use
  Company Number: US-009507513-1301USA014182

PATIENT
  Sex: Female

DRUGS (1)
  1. IMPLANON [Suspect]
     Indication: CONTRACEPTION
     Dosage: UNK

REACTIONS (3)
  - Device difficult to use [Unknown]
  - Medical device complication [Recovered/Resolved]
  - No adverse event [Unknown]
